FAERS Safety Report 10181717 (Version 1)
Quarter: 2014Q2

REPORT INFORMATION
  Report Type: Spontaneous
  Country: US (occurrence: US)
  Receive Date: 20140519
  Receipt Date: 20140519
  Transmission Date: 20141212
  Serious: No
  Sender: FDA-Public Use
  Company Number: US-BANPHARM-20131350

PATIENT
  Age: 50 Year
  Sex: Male
  Weight: 77.11 kg

DRUGS (8)
  1. IBUPROFEN CAPSULES 200 MG [Suspect]
     Indication: BACK PAIN
     Dosage: 1 DF, QD,
     Route: 048
     Dates: start: 20130510, end: 20130514
  2. ASPIRIN 81 MG [Concomitant]
  3. CLOPIDOGREL 75 MG [Concomitant]
  4. METFORMIN 500 MG [Concomitant]
  5. METOPROLOL 25 MG [Concomitant]
  6. INVEGA ER 6 MG [Concomitant]
  7. PRAVASTATIN SODIUM [Concomitant]
  8. BENZTROPINE 1 MG [Concomitant]

REACTIONS (1)
  - Dizziness [Recovered/Resolved]
